FAERS Safety Report 8542575-7 (Version None)
Quarter: 2012Q3

REPORT INFORMATION
  Report Type: 
  Country: None (occurrence: None)
  Receive Date: 20120726
  Receipt Date: 20120723
  Transmission Date: 20120928
  Serious: Yes (Other)
  Sender: FDA-Public Use
  Company Number: DE-ABBOTT-12P-062-0959291-00

PATIENT
  Age: 60 Year
  Sex: Male

DRUGS (2)
  1. HUMIRA [Suspect]
     Indication: PSORIASIS
     Route: 058
     Dates: start: 20100101
  2. METHOTREXATE [Concomitant]
     Indication: PSORIASIS
     Dosage: PER WEEK
     Dates: start: 20110222

REACTIONS (2)
  - HYPERURICAEMIA [None]
  - DIABETES MELLITUS [None]
